FAERS Safety Report 16326706 (Version 1)
Quarter: 2019Q2

REPORT INFORMATION
  Report Type: Spontaneous
  Country: US (occurrence: US)
  Receive Date: 20190517
  Receipt Date: 20190517
  Transmission Date: 20190711
  Serious: Yes (Hospitalization)
  Sender: FDA-Public Use
  Company Number: US-TAIHO ONCOLOGY  INC-EU-2018-01843

PATIENT
  Age: 59 Year
  Sex: Male

DRUGS (6)
  1. MELATONIN [Concomitant]
     Active Substance: MELATONIN
     Dosage: NI
  2. LANTUS [Concomitant]
     Active Substance: INSULIN GLARGINE
     Dosage: NI
  3. ASPIR-LOW [Concomitant]
     Active Substance: ASPIRIN
     Dosage: NI
  4. NOVOLOG [Concomitant]
     Active Substance: INSULIN ASPART
     Dosage: NI
  5. LONSURF [Suspect]
     Active Substance: TIPIRACIL HYDROCHLORIDE\TRIFLURIDINE
     Indication: COLON CANCER
     Dosage: CURRENT CYCLE UNKNOWN,
     Route: 048
     Dates: start: 20180226
  6. ATORVASTATIN CALCIUM. [Concomitant]
     Active Substance: ATORVASTATIN CALCIUM
     Dosage: NI

REACTIONS (3)
  - Inappropriate schedule of product administration [Unknown]
  - Dehydration [Unknown]
  - Cancer surgery [Unknown]

NARRATIVE: CASE EVENT DATE: 2018
